FAERS Safety Report 12179883 (Version 1)
Quarter: 2016Q1

REPORT INFORMATION
  Report Type: Spontaneous
  Country: FR (occurrence: FR)
  Receive Date: 20160315
  Receipt Date: 20160315
  Transmission Date: 20160526
  Serious: Yes (Hospitalization)
  Sender: FDA-Public Use
  Company Number: FR-ASTRAZENECA-2016SE26715

PATIENT
  Age: 818 Month
  Sex: Male

DRUGS (6)
  1. INEXIUM [Suspect]
     Active Substance: ESOMEPRAZOLE
     Route: 048
  2. KARDEGIC [Suspect]
     Active Substance: ASPIRIN LYSINE
     Route: 048
     Dates: end: 20160114
  3. EZETROL [Suspect]
     Active Substance: EZETIMIBE
     Route: 048
  4. UROREC [Suspect]
     Active Substance: SILODOSIN
     Route: 048
  5. VALSARTAN. [Suspect]
     Active Substance: VALSARTAN
     Route: 048
     Dates: end: 20160114
  6. FINASTERIDE. [Suspect]
     Active Substance: FINASTERIDE
     Route: 048

REACTIONS (2)
  - Autoimmune haemolytic anaemia [Recovering/Resolving]
  - Chlamydial infection [Unknown]

NARRATIVE: CASE EVENT DATE: 201512
